FAERS Safety Report 22256303 (Version 1)
Quarter: 2023Q2

REPORT INFORMATION
  Report Type: Spontaneous
  Country: US (occurrence: None)
  Receive Date: 20230425
  Receipt Date: 20230425
  Transmission Date: 20230722
  Serious: No
  Sender: FDA-Public Use
  Company Number: None

PATIENT
  Sex: Female
  Weight: 69.4 kg

DRUGS (8)
  1. CAPECITABINE [Suspect]
     Active Substance: CAPECITABINE
     Indication: Hepatobiliary cancer
     Dosage: 1500 MG TWICE DAILY ORA 14DAYS ON, 7D OFF?
     Route: 050
     Dates: start: 202301
  2. CEFPODOXIME [Concomitant]
  3. CREON [Concomitant]
     Active Substance: PANCRELIPASE AMYLASE\PANCRELIPASE LIPASE\PANCRELIPASE PROTEASE
  4. FLOMAX [Concomitant]
     Active Substance: TAMSULOSIN HYDROCHLORIDE
  5. VITAMINS [Concomitant]
     Active Substance: VITAMINS
  6. OXYBUTYNIN [Concomitant]
  7. PHENAZOPYRIDINE [Concomitant]
  8. PROCHLORPERAZINE [Concomitant]

REACTIONS (2)
  - Chills [None]
  - Red blood cell count decreased [None]
